FAERS Safety Report 6808556-6 (Version None)
Quarter: 2010Q2

REPORT INFORMATION
  Report Type: 
  Country: None (occurrence: None)
  Receive Date: 20100629
  Receipt Date: 20090728
  Transmission Date: 20101027
  Serious: No
  Sender: FDA-Public Use
  Company Number: US-PFIZER INC-2009231947

PATIENT
  Sex: Male
  Weight: 83.9 kg

DRUGS (9)
  1. TIKOSYN [Suspect]
     Indication: ATRIAL FIBRILLATION
     Dosage: 500 MG, UNK
     Dates: start: 20090601
  2. CALCITRIOL [Concomitant]
     Indication: BLOOD CALCIUM DECREASED
     Dosage: UNK
  3. CALCIUM [Concomitant]
     Indication: BLOOD CALCIUM DECREASED
     Dosage: UNK
  4. GLUCOSAMINE W/CHONDROITIN SULFATES [Concomitant]
     Dosage: UNK
  5. PROTONIX [Concomitant]
     Indication: GASTROOESOPHAGEAL REFLUX DISEASE
     Dosage: UNK
  6. SIMVASTATIN [Concomitant]
     Dosage: UNK
  7. WARFARIN [Concomitant]
     Dosage: UNK
  8. PROPAFENONE [Concomitant]
     Dates: end: 20090601
  9. METOPROLOL [Concomitant]
     Dosage: UNK

REACTIONS (3)
  - HEADACHE [None]
  - TINNITUS [None]
  - VENTRICULAR EXTRASYSTOLES [None]
